FAERS Safety Report 4746657-7 (Version None)
Quarter: 2005Q3

REPORT INFORMATION
  Report Type: 
  Country: None (occurrence: None)
  Receive Date: 20050815
  Receipt Date: 20050729
  Transmission Date: 20060218
  Serious: Yes (Hospitalization)
  Sender: FDA-Public Use
  Company Number: USA0507104183

PATIENT
  Age: 70 Year
  Sex: Male

DRUGS (2)
  1. CYMBALTA [Suspect]
     Indication: MAJOR DEPRESSION
     Dosage: 30 MG
  2. XANAX [Concomitant]

REACTIONS (2)
  - ILL-DEFINED DISORDER [None]
  - SUICIDAL IDEATION [None]
